FAERS Safety Report 7897785-9 (Version None)
Quarter: 2011Q4

REPORT INFORMATION
  Report Type: 
  Country: None (occurrence: None)
  Receive Date: 20111103
  Receipt Date: 20111019
  Transmission Date: 20120403
  Serious: Yes (Hospitalization)
  Sender: FDA-Public Use
  Company Number: 2011SGN00208

PATIENT
  Age: 33 Year
  Sex: Female
  Weight: 48.1266 kg

DRUGS (13)
  1. TRAMADOL HCL [Concomitant]
  2. MAGNESIUM PLUS (MAGNESIUM) [Concomitant]
  3. DOXORUBICIN HCL [Suspect]
     Indication: HODGKIN'S DISEASE
     Dosage: 25 MG/M2, Q14D, INTRAVENOUS
     Route: 042
     Dates: start: 20110408, end: 20110909
  4. VINBLASTINE SULFATE [Suspect]
     Indication: HODGKIN'S DISEASE
     Dosage: 6 MG/M2, Q14D, INTRAVENOUS
     Route: 042
     Dates: start: 20110408, end: 20110909
  5. PROTEIN SUPPLEMENTS [Concomitant]
  6. GRANISETRON (GRANISETRONHYDROCHLORIDE) [Concomitant]
  7. ANUSOL (BISMUTH HYDROXIDE, BISMUTH SUBGALLATE, BORIC ACID, MYROXYLON B [Concomitant]
  8. ATIVAN [Concomitant]
  9. BRENTUXIMAB VEDOTIN (BRENTUXIMAB VEDOTIN) INJECTION [Suspect]
     Indication: HODGKIN'S DISEASE
     Dosage: 1.2 MG/KG, Q14D, INTRAVENOUS
     Route: 042
     Dates: start: 20110408, end: 20110909
  10. BLEOMYCIN SULFATE [Suspect]
     Indication: HODGKIN'S DISEASE
     Dosage: 10 UNITS/M2, Q14D, INTRAVENOUS
     Route: 042
     Dates: start: 20110408, end: 20110826
  11. ZOFRAN [Concomitant]
  12. LACTULOSE [Concomitant]
  13. PHENERGAN [Concomitant]

REACTIONS (9)
  - TACHYCARDIA [None]
  - PNEUMOMEDIASTINUM [None]
  - TOXICITY TO VARIOUS AGENTS [None]
  - ORTHOSTATIC HYPOTENSION [None]
  - PNEUMOTHORAX [None]
  - SUBCUTANEOUS EMPHYSEMA [None]
  - PULMONARY TOXICITY [None]
  - ACUTE RESPIRATORY FAILURE [None]
  - PERICARDIAL EFFUSION [None]
